FAERS Safety Report 6148687-X (Version None)
Quarter: 2009Q2

REPORT INFORMATION
  Report Type: 
  Country: None (occurrence: None)
  Receive Date: 20090406
  Receipt Date: 20090406
  Transmission Date: 20091009
  Serious: Yes (Disabling)
  Sender: FDA-Public Use
  Company Number: None

PATIENT
  Age: 26 Year
  Sex: Male
  Weight: 103.4201 kg

DRUGS (1)
  1. CUBICIN [Suspect]
     Indication: SEPSIS
     Dosage: 575MG Q24H IV
     Route: 042
     Dates: start: 20090328, end: 20090330

REACTIONS (2)
  - ARTHRALGIA [None]
  - DISCOMFORT [None]
